FAERS Safety Report 18187138 (Version 1)
Quarter: 2020Q3

REPORT INFORMATION
  Report Type: Spontaneous
  Country: US (occurrence: US)
  Receive Date: 20200822
  Receipt Date: 20200822
  Transmission Date: 20201103
  Serious: Yes (Hospitalization)
  Sender: FDA-Public Use
  Company Number: None

PATIENT
  Age: 40 Year
  Sex: Male
  Weight: 98.7 kg

DRUGS (5)
  1. CISPLATIN. [Suspect]
     Active Substance: CISPLATIN
     Dates: end: 20200817
  2. OXYCODON [Concomitant]
     Active Substance: OXYCODONE
  3. PARACETAMOL [Concomitant]
     Active Substance: ACETAMINOPHEN
  4. IFOSFAMIDE. [Suspect]
     Active Substance: IFOSFAMIDE
     Dates: end: 20200817
  5. TAXOL [Suspect]
     Active Substance: PACLITAXEL
     Dates: end: 20200813

REACTIONS (1)
  - Musculoskeletal pain [None]

NARRATIVE: CASE EVENT DATE: 20200818
